FAERS Safety Report 24203289 (Version 2)
Quarter: 2025Q2

REPORT INFORMATION
  Report Type: Spontaneous
  Country: US (occurrence: US)
  Receive Date: 20240813
  Receipt Date: 20250509
  Transmission Date: 20250716
  Serious: Yes (Other)
  Sender: UCB
  Company Number: US-UCBSA-2024040651

PATIENT
  Age: 67 Year
  Sex: Female

DRUGS (1)
  1. CIMZIA [Suspect]
     Active Substance: CERTOLIZUMAB PEGOL
     Indication: Product used for unknown indication
     Route: 058

REACTIONS (2)
  - Pneumonia [Unknown]
  - COVID-19 [Unknown]

NARRATIVE: CASE EVENT DATE: 20221014
